FAERS Safety Report 6539865-6 (Version None)
Quarter: 2010Q1

REPORT INFORMATION
  Report Type: 
  Country: None (occurrence: None)
  Receive Date: 20100115
  Receipt Date: 20100107
  Transmission Date: 20100710
  Serious: Yes (Death)
  Sender: FDA-Public Use
  Company Number: NL-WYE-G05013309

PATIENT
  Sex: Female

DRUGS (2)
  1. TORISEL [Suspect]
     Indication: RENAL CELL CARCINOMA
     Dosage: 25 MG
     Route: 042
     Dates: start: 20090101, end: 20090101
  2. TORISEL [Suspect]
     Dosage: 25 MG
     Route: 042
     Dates: start: 20090101

REACTIONS (3)
  - CHILLS [None]
  - DISEASE PROGRESSION [None]
  - MUCOSAL INFLAMMATION [None]
